FAERS Safety Report 12391630 (Version 1)
Quarter: 2016Q2

REPORT INFORMATION
  Report Type: Report from Study
  Country: MX (occurrence: MX)
  Receive Date: 20160521
  Receipt Date: 20160521
  Transmission Date: 20160815
  Serious: Yes (Other)
  Sender: FDA-Public Use
  Company Number: MX-AMGEN-MEXSL2016065191

PATIENT
  Age: 78 Year
  Sex: Male

DRUGS (3)
  1. FLUOROURACIL. [Concomitant]
     Active Substance: FLUOROURACIL
     Dosage: UNK
  2. OXALIPLATINO [Concomitant]
     Active Substance: OXALIPLATIN
     Dosage: UNK
  3. NEUPOGEN [Suspect]
     Active Substance: FILGRASTIM
     Indication: NEUTROPENIA
     Dosage: 6 MG/KG, UNK
     Route: 065

REACTIONS (3)
  - Metastases to lymph nodes [Unknown]
  - Metastases to liver [Unknown]
  - Drug effect incomplete [Unknown]
